FAERS Safety Report 4294000-2 (Version None)
Quarter: 2004Q1

REPORT INFORMATION
  Report Type: 
  Country: None (occurrence: None)
  Receive Date: 20040212
  Receipt Date: 20040204
  Transmission Date: 20041129
  Serious: Yes (Hospitalization)
  Sender: FDA-Public Use
  Company Number: WAES 0402SWE00001

PATIENT
  Age: 65 Year
  Sex: Male

DRUGS (5)
  1. ACETAMINOPHEN AND CODEINE PHOSPHATE [Suspect]
     Indication: MIGRAINE WITHOUT AURA
     Route: 048
     Dates: start: 19990101, end: 20030904
  2. ACYCLOVIR [Suspect]
     Indication: HERPES ZOSTER OPHTHALMIC
     Route: 048
     Dates: start: 20030811, end: 20030817
  3. CARBAMAZEPINE [Suspect]
     Indication: HERPES ZOSTER OPHTHALMIC
     Route: 048
     Dates: start: 20030811, end: 20030904
  4. NORFLOXACIN [Concomitant]
  5. VIOXX [Suspect]
     Indication: ARTHRALGIA
     Route: 048
     Dates: start: 19990101, end: 20030904

REACTIONS (8)
  - ALANINE AMINOTRANSFERASE INCREASED [None]
  - ASPARTATE AMINOTRANSFERASE INCREASED [None]
  - BLOOD ALKALINE PHOSPHATASE INCREASED [None]
  - BLOOD BILIRUBIN INCREASED [None]
  - CHROMATURIA [None]
  - FAECES DISCOLOURED [None]
  - INFECTION [None]
  - LIVER DISORDER [None]
